FAERS Safety Report 4269194-5 (Version None)
Quarter: 2004Q1

REPORT INFORMATION
  Report Type: 
  Country: None (occurrence: None)
  Receive Date: 20040108
  Receipt Date: 20031229
  Transmission Date: 20041129
  Serious: Yes (Disabling)
  Sender: FDA-Public Use
  Company Number: 03P-062-0245370-00

PATIENT
  Age: 70 Year
  Sex: Male
  Weight: 83 kg

DRUGS (12)
  1. BIAXIN [Suspect]
     Indication: PNEUMONIA
     Dosage: SEE IMAGE
     Route: 048
     Dates: start: 20031124, end: 20031211
  2. BIAXIN [Suspect]
     Indication: PNEUMONIA
     Dosage: SEE IMAGE
     Route: 048
     Dates: start: 20031124, end: 20031211
  3. CIPROFLOXACIN [Suspect]
     Indication: PNEUMONIA
     Dosage: SEE IMAGE
     Route: 048
     Dates: start: 20031211, end: 20031122
  4. CIPROFLOXACIN [Suspect]
     Indication: PNEUMONIA
     Dosage: SEE IMAGE
     Route: 048
     Dates: start: 20031120, end: 20031201
  5. CIPROFLOXACIN [Suspect]
     Indication: PNEUMONIA
     Dosage: SEE IMAGE
     Route: 048
     Dates: start: 20031223
  6. VINCRISTINE [Suspect]
     Indication: LYMPHOMA
     Dosage: 2 MG, 1 IN 1 D, INTRAVENOUS
     Route: 042
     Dates: start: 20031104
  7. RITUXIMAB [Concomitant]
  8. CYCLOPHOSPHAMIDE [Concomitant]
  9. CROMITEXAN [Concomitant]
  10. PREDNISONE [Concomitant]
  11. NERLASTA [Concomitant]
  12. DOXORUBICIN HCL [Concomitant]

REACTIONS (4)
  - DRUG INTERACTION [None]
  - PERIPHERAL SENSORY NEUROPATHY [None]
  - PNEUMONIA [None]
  - POLYNEUROPATHY [None]
